FAERS Safety Report 19748031 (Version 2)
Quarter: 2021Q3

REPORT INFORMATION
  Report Type: Report from Study
  Country: GB (occurrence: GB)
  Receive Date: 20210826
  Receipt Date: 20210905
  Transmission Date: 20211014
  Serious: Yes (Other)
  Sender: FDA-Public Use
  Company Number: GB-TEVA-2021-GB-1943989

PATIENT
  Age: 52 Year
  Sex: Female
  Weight: 63.5 kg

DRUGS (24)
  1. DEXAMETHASONE. [Concomitant]
     Active Substance: DEXAMETHASONE
     Dosage: 20MG
     Route: 065
     Dates: start: 20210210, end: 20210210
  2. PARACETAMOL [Concomitant]
     Active Substance: ACETAMINOPHEN
     Route: 065
  3. RANITIDINE. [Concomitant]
     Active Substance: RANITIDINE
     Dosage: 150MG
     Route: 065
     Dates: start: 20210331, end: 20210409
  4. RANITIDINE. [Concomitant]
     Active Substance: RANITIDINE
     Dosage: 150MG
     Route: 065
     Dates: start: 20210210, end: 20210219
  5. ETOPOSIDE. [Suspect]
     Active Substance: ETOPOSIDE
     Dosage: 180MG
     Route: 065
     Dates: start: 20210303
  6. CETIRIZINE [Concomitant]
     Active Substance: CETIRIZINE HYDROCHLORIDE
     Dosage: 30MG
     Route: 065
     Dates: start: 20210304, end: 20210306
  7. CETIRIZINE [Concomitant]
     Active Substance: CETIRIZINE HYDROCHLORIDE
     Dosage: 30MG
     Route: 065
     Dates: start: 20210401, end: 20210403
  8. CHLORPHENAMINE [Concomitant]
     Active Substance: CHLORPHENIRAMINE MALEATE
     Dosage: 10MG
     Route: 065
     Dates: start: 20210303, end: 20210303
  9. CHLORPHENAMINE [Concomitant]
     Active Substance: CHLORPHENIRAMINE MALEATE
     Dosage: 10MG
     Route: 065
     Dates: start: 20210210, end: 20210210
  10. DEXAMETHASONE. [Concomitant]
     Active Substance: DEXAMETHASONE
     Dosage: 20MG
     Route: 065
     Dates: start: 20210331, end: 20210331
  11. DEXAMETHASONE. [Concomitant]
     Active Substance: DEXAMETHASONE
     Dosage: 12MG
     Route: 065
     Dates: start: 20210401, end: 20210403
  12. DEXAMETHASONE. [Concomitant]
     Active Substance: DEXAMETHASONE
     Dosage: 20MG
     Route: 065
     Dates: start: 20210303, end: 20210303
  13. GRANISETRON [Concomitant]
     Active Substance: GRANISETRON
     Dosage: 3MG
     Route: 065
     Dates: start: 20210210, end: 20210210
  14. GRANISETRON [Concomitant]
     Active Substance: GRANISETRON
     Dosage: 3MG
     Route: 065
     Dates: start: 20210303, end: 20210303
  15. ETOPOSIDE. [Suspect]
     Active Substance: ETOPOSIDE
     Indication: SMALL CELL LUNG CANCER EXTENSIVE STAGE
     Dosage: 350MG
     Route: 048
     Dates: start: 20210401
  16. DEXAMETHASONE. [Concomitant]
     Active Substance: DEXAMETHASONE
     Dosage: 12MG
     Route: 065
     Dates: start: 20210211, end: 20210213
  17. SALBUTAMOL [Concomitant]
     Active Substance: ALBUTEROL
     Route: 065
  18. CARBOPLATIN. [Suspect]
     Active Substance: CARBOPLATIN
     Indication: SMALL CELL LUNG CANCER EXTENSIVE STAGE
     Dosage: 630MG
     Route: 065
     Dates: start: 20210303
  19. ATEZOLIZUMAB. [Suspect]
     Active Substance: ATEZOLIZUMAB
     Indication: SMALL CELL LUNG CANCER EXTENSIVE STAGE
     Dosage: 1200MG
     Route: 042
     Dates: start: 20210303
  20. CETIRIZINE [Concomitant]
     Active Substance: CETIRIZINE HYDROCHLORIDE
     Dosage: 30MG
     Route: 065
     Dates: start: 20210211, end: 20210213
  21. CHLORPHENAMINE [Concomitant]
     Active Substance: CHLORPHENIRAMINE MALEATE
     Dosage: 10MG
     Route: 065
     Dates: start: 20210331, end: 20210331
  22. DEXAMETHASONE. [Concomitant]
     Active Substance: DEXAMETHASONE
     Dosage: 12MG
     Route: 065
     Dates: start: 20210304, end: 20210306
  23. RANITIDINE. [Concomitant]
     Active Substance: RANITIDINE
     Dosage: 150MG
     Route: 065
     Dates: start: 20210303, end: 20210312
  24. GRANISETRON [Concomitant]
     Active Substance: GRANISETRON
     Dosage: 3MG
     Route: 065
     Dates: start: 20210331, end: 20210331

REACTIONS (6)
  - Nausea [Recovered/Resolved]
  - Lower respiratory tract infection [Recovered/Resolved]
  - Arthralgia [Recovered/Resolved]
  - Back pain [Recovered/Resolved]
  - Fatigue [Recovered/Resolved]
  - Skin reaction [Recovered/Resolved]

NARRATIVE: CASE EVENT DATE: 20210303
